FAERS Safety Report 18933361 (Version 8)
Quarter: 2025Q4

REPORT INFORMATION
  Report Type: Spontaneous
  Country: JP (occurrence: JP)
  Receive Date: 20210224
  Receipt Date: 20251030
  Transmission Date: 20260118
  Serious: Yes (Life-Threatening, Hospitalization, Other)
  Sender: BRISTOL-MYERS SQUIBB COMPANY
  Company Number: JP-BRISTOL-MYERS SQUIBB COMPANY-BMS-2020-007799

PATIENT
  Age: 78 Year
  Sex: Male

DRUGS (5)
  1. OPDIVO [Suspect]
     Active Substance: NIVOLUMAB
     Indication: Non-small cell lung cancer recurrent
     Route: 041
  2. ALLOPURINOL [Concomitant]
     Active Substance: ALLOPURINOL
     Indication: Gout
     Dosage: ORAL DRUG UNSPECIFIED FORM
  3. BEVACIZUMAB [Concomitant]
     Active Substance: BEVACIZUMAB
     Indication: Non-small cell lung cancer recurrent
  4. PACLITAXEL [Concomitant]
     Active Substance: PACLITAXEL
     Indication: Non-small cell lung cancer recurrent
  5. CARBOPLATIN [Concomitant]
     Active Substance: CARBOPLATIN
     Indication: Non-small cell lung cancer recurrent

REACTIONS (1)
  - Toxic epidermal necrolysis [Recovered/Resolved]
